FAERS Safety Report 19617952 (Version 2)
Quarter: 2021Q3

REPORT INFORMATION
  Report Type: Spontaneous
  Country: JP (occurrence: JP)
  Receive Date: 20210727
  Receipt Date: 20210809
  Transmission Date: 20211014
  Serious: Yes (Hospitalization, Other)
  Sender: FDA-Public Use
  Company Number: JP-BRISTOL-MYERS SQUIBB COMPANY-BMS-2021-065180

PATIENT
  Age: 65 Year
  Sex: Female
  Weight: 38.5 kg

DRUGS (2)
  1. OPDIVO [Suspect]
     Active Substance: NIVOLUMAB
     Indication: OESOPHAGEAL CARCINOMA
     Dosage: 240 MG, Q2W
     Route: 041
     Dates: start: 20210615, end: 20210615
  2. URSO [Concomitant]
     Active Substance: URSODIOL
     Indication: PRIMARY BILIARY CHOLANGITIS
     Dosage: UNK
     Route: 048

REACTIONS (5)
  - Hepatic function abnormal [Recovered/Resolved]
  - Pneumonia [Not Recovered/Not Resolved]
  - Rash pruritic [Recovering/Resolving]
  - Lung opacity [Unknown]
  - Respiratory failure [Unknown]

NARRATIVE: CASE EVENT DATE: 20210628
